FAERS Safety Report 7502843-4 (Version None)
Quarter: 2011Q2

REPORT INFORMATION
  Report Type: 
  Country: None (occurrence: None)
  Receive Date: 20110525
  Receipt Date: 20100817
  Transmission Date: 20111010
  Serious: No
  Sender: FDA-Public Use
  Company Number: US-NOVEN-ALL1-2010-04369

PATIENT

DRUGS (2)
  1. DAYTRANA [Suspect]
     Dosage: 15 MG, 1X/DAY:QD
     Route: 062
     Dates: start: 20100201
  2. FOCALIN [Concomitant]
     Dosage: 2.5 MG, 1X/DAY:QD
     Route: 048
     Dates: start: 20100201

REACTIONS (1)
  - PYREXIA [None]
